FAERS Safety Report 6836629-0 (Version None)
Quarter: 2010Q3

REPORT INFORMATION
  Report Type: 
  Country: None (occurrence: None)
  Receive Date: 20100713
  Receipt Date: 20100709
  Transmission Date: 20110219
  Serious: Yes (Life-Threatening)
  Sender: FDA-Public Use
  Company Number: PHHY2010JP39497

PATIENT
  Sex: Female
  Weight: 58 kg

DRUGS (10)
  1. TEGRETOL [Suspect]
     Indication: CENTRAL PAIN SYNDROME
     Dosage: 200 MG DAILY
     Route: 048
     Dates: end: 20100614
  2. PLETAL [Suspect]
     Indication: CEREBRAL INFARCTION
     Dosage: 50 MG DAILY
     Route: 048
     Dates: end: 20100614
  3. TICLOPIDINE HCL [Suspect]
     Indication: CEREBRAL INFARCTION
     Dosage: UNK,UNK
     Route: 048
     Dates: end: 20100614
  4. SALOBEL [Suspect]
     Indication: HYPERURICAEMIA
     Dosage: UNK,UNK
     Route: 048
     Dates: end: 20100614
  5. SAWADOL L [Concomitant]
     Indication: ANGINA PECTORIS
     Dosage: 60 MG, UNK
     Route: 048
     Dates: end: 20100614
  6. YODEL [Concomitant]
     Indication: CONSTIPATION
     Dosage: 160 MG, UNK
     Route: 048
     Dates: end: 20100614
  7. IRBESARTAN [Concomitant]
     Indication: HYPERTENSION
     Dosage: 200 MG, UNK
     Route: 048
     Dates: end: 20100614
  8. PRAVASTATIN [Concomitant]
     Indication: HYPERLIPIDAEMIA
     Dosage: 10 MG, UNK
     Route: 048
     Dates: end: 20100614
  9. ALTAT [Concomitant]
     Indication: GASTRITIS
     Dosage: 75 MG, UNK
     Route: 048
     Dates: end: 20100614
  10. ATELEC [Concomitant]
     Indication: HYPERTENSION
     Dosage: 10 MG, UNK
     Route: 048
     Dates: end: 20100614

REACTIONS (11)
  - ALANINE AMINOTRANSFERASE INCREASED [None]
  - ASPARTATE AMINOTRANSFERASE INCREASED [None]
  - BLOOD ALKALINE PHOSPHATASE INCREASED [None]
  - BLOOD CREATININE INCREASED [None]
  - BLOOD LACTATE DEHYDROGENASE INCREASED [None]
  - GAMMA-GLUTAMYLTRANSFERASE INCREASED [None]
  - HAEMOGLOBIN DECREASED [None]
  - INTERSTITIAL LUNG DISEASE [None]
  - OXYGEN SATURATION DECREASED [None]
  - PYREXIA [None]
  - RED BLOOD CELL COUNT DECREASED [None]
